FAERS Safety Report 7210925-X (Version None)
Quarter: 2011Q1

REPORT INFORMATION
  Report Type: 
  Country: None (occurrence: None)
  Receive Date: 20110105
  Receipt Date: 20101216
  Transmission Date: 20110831
  Serious: Yes (Hospitalization, Congenital Anomaly)
  Sender: FDA-Public Use
  Company Number: A0679856A

PATIENT
  Sex: Female

DRUGS (8)
  1. HYDRALAZINE [Concomitant]
  2. TOPROL-XL [Concomitant]
  3. ASPIRIN [Concomitant]
  4. PAXIL [Suspect]
     Dosage: 10MG TWICE PER DAY
     Dates: start: 20060101, end: 20070129
  5. PAXIL CR [Suspect]
     Dosage: 12.5MG UNKNOWN
     Dates: start: 20040304, end: 20060802
  6. HUMULIN N [Concomitant]
  7. GLUCOPHAGE [Concomitant]
  8. HUMALOG [Concomitant]

REACTIONS (8)
  - CONGENITAL ANOMALY [None]
  - LUNG DISORDER [None]
  - DRUG EXPOSURE DURING PREGNANCY [None]
  - CONGENITAL AORTIC ANOMALY [None]
  - FALLOT'S TETRALOGY [None]
  - PATENT DUCTUS ARTERIOSUS [None]
  - VENTRICULAR SEPTAL DEFECT [None]
  - CONGENITAL PULMONARY ARTERY ANOMALY [None]
